FAERS Safety Report 13144483 (Version 2)
Quarter: 2017Q1

REPORT INFORMATION
  Report Type: Spontaneous
  Country: JP (occurrence: JP)
  Receive Date: 20170124
  Receipt Date: 20170214
  Transmission Date: 20170428
  Serious: Yes (Hospitalization)
  Sender: FDA-Public Use
  Company Number: JP-009507513-1701JPN001461J

PATIENT
  Age: 77 Year
  Sex: Female

DRUGS (6)
  1. REBETOL [Suspect]
     Active Substance: RIBAVIRIN
     Dosage: UNK
     Route: 048
  2. SOVALDI [Suspect]
     Active Substance: SOFOSBUVIR
     Dosage: UNK
     Route: 048
  3. URSO [Concomitant]
     Active Substance: URSODIOL
     Dosage: UNK
     Route: 048
  4. NATRIX [Concomitant]
     Active Substance: INDAPAMIDE
     Dosage: UNK
     Route: 048
  5. AMLODIPINE [Concomitant]
     Active Substance: AMLODIPINE BESYLATE
     Dosage: UNK
     Route: 048
  6. FERRUM [Concomitant]
     Active Substance: FERROUS FUMARATE
     Dosage: UNK
     Route: 048

REACTIONS (3)
  - Fracture [Unknown]
  - Haemoglobin decreased [Not Recovered/Not Resolved]
  - Road traffic accident [Unknown]
